FAERS Safety Report 14236123 (Version 1)
Quarter: 2017Q4

REPORT INFORMATION
  Report Type: Spontaneous
  Country: IT (occurrence: IT)
  Receive Date: 20171129
  Receipt Date: 20171129
  Transmission Date: 20180321
  Serious: Yes (Other)
  Sender: FDA-Public Use
  Company Number: IT-MERCK KGAA-2036256

PATIENT
  Age: 35 Year
  Sex: Female

DRUGS (1)
  1. NOVOTHYROX [Suspect]
     Active Substance: LEVOTHYROXINE SODIUM
     Indication: AUTOIMMUNE THYROIDITIS

REACTIONS (4)
  - Reverse tri-iodothyronine increased [None]
  - Adrenal insufficiency [None]
  - Fibromyalgia [None]
  - Parathyroid disorder [None]
